FAERS Safety Report 20567946 (Version 1)
Quarter: 2022Q1

REPORT INFORMATION
  Report Type: Spontaneous
  Country: PT (occurrence: PT)
  Receive Date: 20220308
  Receipt Date: 20220308
  Transmission Date: 20220424
  Serious: Yes (Other)
  Sender: FDA-Public Use
  Company Number: None

PATIENT
  Age: 80 Year
  Weight: 60 kg

DRUGS (7)
  1. JARDIANCE [Suspect]
     Active Substance: EMPAGLIFLOZIN
     Indication: Diabetes mellitus
     Dosage: FOA: COMPRIMIDO REVESTIDO POR PEL?CULA
     Route: 048
     Dates: start: 20211219
  2. AMLODIPINE BESYLATE\INDAPAMIDE\PERINDOPRIL ARGININE [Concomitant]
     Active Substance: AMLODIPINE BESYLATE\INDAPAMIDE\PERINDOPRIL ARGININE
     Indication: Product used for unknown indication
     Dosage: FOA: COMPRIMIDO REVESTIDO POR PEL?CULA
  3. NOVORAPID [Concomitant]
     Active Substance: INSULIN ASPART
     Indication: Product used for unknown indication
     Dosage: FOA: SOLU??O INJET?VEL?STRENGTH : 100U/ML
  4. Tromalyt 150 mg [Concomitant]
     Indication: Product used for unknown indication
     Dosage: FOA: C?PSULA DE LIBERTA??O MODIFICADA
  5. ATORVASTATIN CALCIUM\EZETIMIBE [Concomitant]
     Active Substance: ATORVASTATIN CALCIUM\EZETIMIBE
     Indication: Product used for unknown indication
     Dosage: FOA; COMPRIMIDO REVESTIDO POR PEL?CULA
  6. JANUMET [Concomitant]
     Active Substance: METFORMIN HYDROCHLORIDE\SITAGLIPTIN PHOSPHATE
     Indication: Product used for unknown indication
     Dosage: 1 AT BREAKFAST+1 AT DINNER?FOA; COMPRIMIDO REVESTIDO POR PEL?CULA
  7. LEVEMIR [Concomitant]
     Active Substance: INSULIN DETEMIR
     Indication: Product used for unknown indication
     Dosage: FOA; SOLU??O INJET?VEL??STENGTH: 100U/ML

REACTIONS (3)
  - Lip oedema [Recovered/Resolved]
  - Eye oedema [Recovered/Resolved]
  - Pruritus [Recovered/Resolved]

NARRATIVE: CASE EVENT DATE: 20211219
